FAERS Safety Report 10605756 (Version 4)
Quarter: 2018Q3

REPORT INFORMATION
  Report Type: Report from Study
  Country: KR (occurrence: KR)
  Receive Date: 20141125
  Receipt Date: 20180709
  Transmission Date: 20181010
  Serious: Yes (Death, Hospitalization)
  Sender: FDA-Public Use
  Company Number: KR-ROCHE-1429853

PATIENT
  Age: 65 Year
  Sex: Female

DRUGS (32)
  1. LIMAPROST [Concomitant]
     Active Substance: LIMAPROST
     Route: 048
     Dates: start: 20140203, end: 20140209
  2. METHOTREXATE. [Concomitant]
     Active Substance: METHOTREXATE
     Route: 065
     Dates: start: 20140203
  3. STILLEN [Concomitant]
     Route: 048
     Dates: start: 20140428, end: 20140428
  4. TAZOFERAN [Concomitant]
     Active Substance: PIPERACILLIN SODIUM\TAZOBACTAM SODIUM
     Indication: INFECTION
     Route: 042
     Dates: start: 20140428, end: 20140501
  5. TOCILIZUMAB. [Suspect]
     Active Substance: TOCILIZUMAB
     Indication: RHEUMATOID ARTHRITIS
     Dosage: MOST RECENT DOSE ON 07/APR/2014
     Route: 042
     Dates: start: 20140203
  6. AMARYL M [Concomitant]
     Active Substance: GLIMEPIRIDE\METFORMIN
     Dosage: 2/1000MG
     Route: 048
     Dates: start: 20120710, end: 20140427
  7. ALBIS [Concomitant]
     Active Substance: BISMUTH SUBCITRATE\RANITIDINE HYDROCHLORIDE\SUCRALFATE
     Dosage: UNCERTAINTY
     Route: 048
     Dates: start: 20140203, end: 20140209
  8. METHOTREXATE. [Concomitant]
     Active Substance: METHOTREXATE
     Route: 065
     Dates: start: 20140407
  9. NORPIN (NOREPINEPHRINE) [Concomitant]
     Indication: HYPOTENSION
     Route: 042
     Dates: start: 20140428, end: 20140428
  10. RITUXIMAB. [Concomitant]
     Active Substance: RITUXIMAB
     Indication: RHEUMATOID ARTHRITIS
     Route: 042
     Dates: start: 20130912, end: 20130926
  11. FOLIC ACID. [Concomitant]
     Active Substance: FOLIC ACID
     Route: 048
     Dates: start: 20140428, end: 20141003
  12. ISONIAZID. [Concomitant]
     Active Substance: ISONIAZID
     Route: 048
     Dates: start: 20140127, end: 20140427
  13. DEXAMETHASONE. [Concomitant]
     Active Substance: DEXAMETHASONE
     Route: 042
     Dates: start: 20140203, end: 20140203
  14. FOLIC ACID. [Concomitant]
     Active Substance: FOLIC ACID
     Route: 048
     Dates: start: 20090615, end: 20140427
  15. DILATREND [Concomitant]
     Active Substance: CARVEDILOL
     Indication: HYPERTENSION
     Route: 048
     Dates: start: 20140303, end: 20140428
  16. METHOTREXATE. [Concomitant]
     Active Substance: METHOTREXATE
     Indication: RHEUMATOID ARTHRITIS
     Route: 048
     Dates: start: 20130102
  17. PREGABALIN. [Concomitant]
     Active Substance: PREGABALIN
     Route: 048
     Dates: start: 20131001, end: 20140427
  18. STILLEN [Concomitant]
     Route: 048
     Dates: start: 20131001, end: 20140427
  19. PHENIRAMINE [Concomitant]
     Active Substance: PHENIRAMINE
     Route: 042
     Dates: start: 20140203, end: 20140203
  20. CRAVIT [Concomitant]
     Active Substance: LEVOFLOXACIN
     Indication: INFECTION
     Route: 042
     Dates: start: 20140428, end: 20140428
  21. PANTOLOC [Concomitant]
     Active Substance: PANTOPRAZOLE SODIUM
     Route: 048
     Dates: start: 20140428, end: 20140601
  22. PHENIRAMINE [Concomitant]
     Active Substance: PHENIRAMINE
     Route: 042
     Dates: start: 20140407, end: 20140407
  23. RISENEX M [Concomitant]
     Indication: OSTEOPOROSIS
     Dosage: UNCERTAINTY
     Route: 048
     Dates: start: 20131126, end: 20140427
  24. HANOMYCIN [Concomitant]
     Indication: INFECTION
     Route: 042
     Dates: start: 20140428, end: 20140429
  25. SOLONDO [Concomitant]
     Active Substance: PREDNISOLONE
     Route: 048
     Dates: start: 20140428, end: 20140428
  26. DEXAMETHASONE. [Concomitant]
     Active Substance: DEXAMETHASONE
     Route: 042
     Dates: start: 20140407, end: 20140407
  27. CELECOXIB. [Concomitant]
     Active Substance: CELECOXIB
     Indication: RHEUMATOID ARTHRITIS
     Route: 048
     Dates: start: 20111116, end: 20141003
  28. PANTOLOC [Concomitant]
     Active Substance: PANTOPRAZOLE SODIUM
     Route: 048
     Dates: start: 20131001, end: 20140427
  29. SOLONDO [Concomitant]
     Active Substance: PREDNISOLONE
     Indication: RHEUMATOID ARTHRITIS
     Route: 048
     Dates: start: 20140127, end: 20140427
  30. TIZANIDINE HCL [Concomitant]
     Active Substance: TIZANIDINE HYDROCHLORIDE
     Route: 048
     Dates: start: 20140203, end: 20140209
  31. GABAPENTIN. [Concomitant]
     Active Substance: GABAPENTIN
     Route: 048
     Dates: start: 20140203, end: 20140209
  32. DIOVAN [Concomitant]
     Active Substance: VALSARTAN
     Indication: HYPERTENSION
     Route: 048
     Dates: start: 20140303, end: 20140428

REACTIONS (7)
  - Pubis fracture [Unknown]
  - Rheumatoid arthritis [Recovered/Resolved]
  - Pneumonia [Fatal]
  - Sepsis [Recovered/Resolved]
  - Pelvic abscess [Recovered/Resolved]
  - Pulmonary embolism [Recovered/Resolved]
  - Arthritis bacterial [Unknown]

NARRATIVE: CASE EVENT DATE: 20140429
